FAERS Safety Report 14907421 (Version 1)
Quarter: 2018Q2

REPORT INFORMATION
  Report Type: Report from Study
  Country: US (occurrence: US)
  Receive Date: 20180517
  Receipt Date: 20180517
  Transmission Date: 20180711
  Serious: Yes (Life-Threatening, Other)
  Sender: FDA-Public Use
  Company Number: US-ROCHE-2124432

PATIENT
  Sex: Female
  Weight: 55.5 kg

DRUGS (4)
  1. NUTROPIN AQ [Suspect]
     Active Substance: SOMATROPIN
     Indication: TURNER^S SYNDROME
     Route: 058
     Dates: start: 20160812
  2. NUTROPIN AQ [Suspect]
     Active Substance: SOMATROPIN
     Route: 058
     Dates: start: 20170315
  3. NUTROPIN AQ [Suspect]
     Active Substance: SOMATROPIN
     Route: 058
  4. NUTROPIN AQ [Suspect]
     Active Substance: SOMATROPIN
     Indication: HYPOPITUITARISM
     Route: 058
     Dates: start: 200812

REACTIONS (8)
  - Peripheral swelling [Unknown]
  - Anisomastia [Unknown]
  - Blood creatinine decreased [Unknown]
  - Nail disorder [Unknown]
  - Oedema peripheral [Unknown]
  - Growth retardation [Unknown]
  - Red cell distribution width decreased [Unknown]
  - Device leakage [Unknown]
